FAERS Safety Report 22183222 (Version 1)
Quarter: 2023Q2

REPORT INFORMATION
  Report Type: Spontaneous
  Country: US (occurrence: US)
  Receive Date: 20230406
  Receipt Date: 20230406
  Transmission Date: 20230722
  Serious: No
  Sender: FDA-Public Use
  Company Number: US-Evolus, Inc.-2022EV000252

PATIENT
  Age: 51 Year
  Sex: Female

DRUGS (2)
  1. JEUVEAU [Suspect]
     Active Substance: PRABOTULINUMTOXINA-XVFS
     Indication: Skin wrinkling
     Dosage: GLABELLA -20, FRONTALIS -15, ORBICULARIS OCULI -24, DEPRESSOR ANGULAR ORIS -6
     Dates: start: 20220727, end: 20220727
  2. JEUVEAU [Suspect]
     Active Substance: PRABOTULINUMTOXINA-XVFS
     Indication: Product used for unknown indication

REACTIONS (5)
  - Hypoaesthesia oral [Not Recovered/Not Resolved]
  - Ageusia [Not Recovered/Not Resolved]
  - Eye disorder [Not Recovered/Not Resolved]
  - Reduced facial expression [Not Recovered/Not Resolved]
  - Off label use [Not Recovered/Not Resolved]
